FAERS Safety Report 6772389-X (Version None)
Quarter: 2010Q2

REPORT INFORMATION
  Report Type: 
  Country: None (occurrence: None)
  Receive Date: 20100616
  Receipt Date: 20090514
  Transmission Date: 20101027
  Serious: No
  Sender: FDA-Public Use
  Company Number: US-ASTRAZENECA-2009UW12489

PATIENT
  Age: 86 Year
  Sex: Male
  Weight: 106.6 kg

DRUGS (12)
  1. PULMICORT RESPULES [Suspect]
     Indication: CHRONIC OBSTRUCTIVE PULMONARY DISEASE
     Route: 055
     Dates: start: 20090201
  2. PREDNISONE [Concomitant]
  3. LASIX [Concomitant]
  4. COUMADIN [Concomitant]
  5. LOTENSIN [Concomitant]
  6. OMEPRAZOLE [Concomitant]
  7. SPIRIVA [Concomitant]
  8. DIGOXIN [Concomitant]
  9. BYSOLTIC [Concomitant]
  10. SUPER B COMPLEX [Concomitant]
  11. VITAMIN-MINERAL COMPOUND TAB [Concomitant]
  12. LIPITOR [Concomitant]

REACTIONS (2)
  - BURNING SENSATION [None]
  - RASH PRURITIC [None]
